FAERS Safety Report 12903250 (Version 1)
Quarter: 2016Q4

REPORT INFORMATION
  Report Type: Spontaneous
  Country: US (occurrence: US)
  Receive Date: 20161031
  Receipt Date: 20161031
  Transmission Date: 20170207
  Serious: No
  Sender: FDA-Public Use
  Company Number: None

PATIENT
  Age: 56 Year
  Sex: Male

DRUGS (1)
  1. HARVONI [Suspect]
     Active Substance: LEDIPASVIR\SOFOSBUVIR
     Dosage: 90-400MG
     Route: 048
     Dates: start: 20160912

REACTIONS (4)
  - Anorectal discomfort [None]
  - Mood altered [None]
  - Dizziness [None]
  - Irritability [None]

NARRATIVE: CASE EVENT DATE: 20161010
